FAERS Safety Report 13073719 (Version 1)
Quarter: 2016Q4

REPORT INFORMATION
  Report Type: Spontaneous
  Country: US (occurrence: US)
  Receive Date: 20161229
  Receipt Date: 20161229
  Transmission Date: 20170207
  Serious: Yes (Hospitalization)
  Sender: FDA-Public Use
  Company Number: US-INTERPRAG-PM-OCA2016-00326

PATIENT

DRUGS (1)
  1. OCALIVA [Suspect]
     Active Substance: OBETICHOLIC ACID
     Indication: BILIARY CIRRHOSIS PRIMARY
     Dosage: 1 TABLET, WEEKLY
     Route: 048
     Dates: start: 20160727

REACTIONS (3)
  - White blood cell count increased [Unknown]
  - Peritonitis bacterial [Unknown]
  - Ascites [Unknown]

NARRATIVE: CASE EVENT DATE: 201611
